FAERS Safety Report 6749934-3 (Version None)
Quarter: 2010Q2

REPORT INFORMATION
  Report Type: 
  Country: None (occurrence: None)
  Receive Date: 20100527
  Receipt Date: 20100527
  Transmission Date: 20101027
  Serious: No
  Sender: FDA-Public Use
  Company Number: None

PATIENT
  Age: 58 Year
  Sex: Male
  Weight: 81 kg

DRUGS (1)
  1. ADENOSINE [Suspect]
     Indication: CORONARY ARTERY DISEASE
     Dosage: 36.2 MG ONCE IV
     Route: 042
     Dates: start: 20100517, end: 20100517

REACTIONS (1)
  - CARDIAC ARREST [None]
